FAERS Safety Report 12351385 (Version 1)
Quarter: 2016Q2

REPORT INFORMATION
  Report Type: Spontaneous
  Country: US (occurrence: None)
  Receive Date: 20160509
  Receipt Date: 20160509
  Transmission Date: 20160815
  Serious: No
  Sender: FDA-Public Use
  Company Number: None

PATIENT
  Age: 49 Year
  Sex: Female
  Weight: 68.04 kg

DRUGS (9)
  1. CELEBREX [Concomitant]
     Active Substance: CELECOXIB
  2. NAPROSYN [Concomitant]
     Active Substance: NAPROXEN
  3. PRAZOSYN [Concomitant]
  4. ZANAFLEX [Concomitant]
     Active Substance: TIZANIDINE HYDROCHLORIDE
  5. VISTARIL [Concomitant]
     Active Substance: HYDROXYZINE PAMOATE
  6. SAPHRIS [Suspect]
     Active Substance: ASENAPINE MALEATE
     Route: 060
     Dates: start: 20160411, end: 20160411
  7. TOPAMAX [Concomitant]
     Active Substance: TOPIRAMATE
  8. LIPITOR [Concomitant]
     Active Substance: ATORVASTATIN CALCIUM
  9. NEURONTIN [Concomitant]
     Active Substance: GABAPENTIN

REACTIONS (2)
  - Tremor [None]
  - Muscle twitching [None]

NARRATIVE: CASE EVENT DATE: 20160412
